FAERS Safety Report 7770060-9 (Version None)
Quarter: 2011Q3

REPORT INFORMATION
  Report Type: 
  Country: None (occurrence: None)
  Receive Date: 20110922
  Receipt Date: 20110207
  Transmission Date: 20111222
  Serious: No
  Sender: FDA-Public Use
  Company Number: US-ASTRAZENECA-2010SE46534

PATIENT
  Age: 901 Month
  Sex: Female
  Weight: 99.8 kg

DRUGS (8)
  1. SEROQUEL [Suspect]
     Route: 048
     Dates: start: 20091201, end: 20100301
  2. MS CONTIN [Concomitant]
     Indication: PAIN
  3. SYNTHROID [Concomitant]
     Indication: THYROIDECTOMY
  4. ZOCOR [Concomitant]
     Indication: HYPERCHOLESTEROLAEMIA
  5. SEROQUEL [Suspect]
     Route: 048
     Dates: start: 20100801
  6. METOPROLOL TARTRATE [Concomitant]
     Indication: HYPERTENSION
  7. AMLODIPINE [Concomitant]
     Indication: HYPERTENSION
  8. SEROQUEL [Suspect]
     Route: 048
     Dates: start: 20100301, end: 20100801

REACTIONS (4)
  - FOOD CRAVING [None]
  - SOMNOLENCE [None]
  - BLOOD CHOLESTEROL INCREASED [None]
  - WEIGHT INCREASED [None]
